FAERS Safety Report 9131101 (Version 2)
Quarter: 2013Q2

REPORT INFORMATION
  Report Type: Spontaneous
  Country: US (occurrence: US)
  Receive Date: 20130301
  Receipt Date: 20130415
  Transmission Date: 20140414
  Serious: No
  Sender: FDA-Public Use
  Company Number: US-BAYER-2013-023533

PATIENT
  Age: 55 Year
  Sex: Female
  Weight: 75.28 kg

DRUGS (1)
  1. CLIMARA [Suspect]
     Indication: MENOPAUSAL SYMPTOMS
     Dosage: 0.7 MG, OW
     Route: 062
     Dates: start: 201301, end: 20130214

REACTIONS (11)
  - Application site rash [Not Recovered/Not Resolved]
  - Application site erythema [None]
  - Application site irritation [None]
  - Product adhesion issue [None]
  - Drug ineffective [Not Recovered/Not Resolved]
  - Vaginal infection [Not Recovered/Not Resolved]
  - Hot flush [Not Recovered/Not Resolved]
  - Fatigue [Not Recovered/Not Resolved]
  - Dizziness [Not Recovered/Not Resolved]
  - Nausea [Not Recovered/Not Resolved]
  - Headache [Not Recovered/Not Resolved]
